FAERS Safety Report 18114144 (Version 2)
Quarter: 2020Q3

REPORT INFORMATION
  Report Type: Spontaneous
  Country: GB (occurrence: GB)
  Receive Date: 20200805
  Receipt Date: 20200820
  Transmission Date: 20201103
  Serious: Yes (Other)
  Sender: FDA-Public Use
  Company Number: GB-ACCORD-194182

PATIENT
  Age: 76 Year
  Sex: Female
  Weight: 60.32 kg

DRUGS (5)
  1. PROPRANOLOL [Concomitant]
     Active Substance: PROPRANOLOL HYDROCHLORIDE
  2. SANATOGEN [Concomitant]
  3. OMEPRAZOLE. [Concomitant]
     Active Substance: OMEPRAZOLE
  4. NUTRIZYM [Concomitant]
  5. AMLODIPINE [Suspect]
     Active Substance: AMLODIPINE BESYLATE
     Indication: PRODUCT USED FOR UNKNOWN INDICATION

REACTIONS (7)
  - Throat irritation [Not Recovered/Not Resolved]
  - Foaming at mouth [Not Recovered/Not Resolved]
  - Pharyngeal swelling [Not Recovered/Not Resolved]
  - Choking [Not Recovered/Not Resolved]
  - Vomiting [Not Recovered/Not Resolved]
  - Dyspnoea [Not Recovered/Not Resolved]
  - Product physical issue [Not Recovered/Not Resolved]

NARRATIVE: CASE EVENT DATE: 20200708
